FAERS Safety Report 4517167-7 (Version None)
Quarter: 2004Q4

REPORT INFORMATION
  Report Type: 
  Country: None (occurrence: None)
  Receive Date: 20041202
  Receipt Date: 20041123
  Transmission Date: 20050328
  Serious: Yes (Other)
  Sender: FDA-Public Use
  Company Number: US-MERCK-0411USA03836

PATIENT
  Sex: Female

DRUGS (8)
  1. ZETIA [Suspect]
     Route: 048
  2. ZETIA [Suspect]
     Route: 048
     Dates: end: 20040920
  3. PREMARIN [Concomitant]
     Route: 065
  4. TEGRETOL [Concomitant]
     Route: 065
  5. SOMA [Concomitant]
     Route: 065
  6. VASOTEC [Concomitant]
     Route: 065
  7. ALLEGRA [Concomitant]
     Route: 065
  8. FLONASE [Concomitant]
     Route: 065

REACTIONS (2)
  - MYALGIA [None]
  - PAIN IN EXTREMITY [None]
